FAERS Safety Report 20907271 (Version 1)
Quarter: 2022Q2

REPORT INFORMATION
  Report Type: Spontaneous
  Country: GB (occurrence: GB)
  Receive Date: 20220602
  Receipt Date: 20220602
  Transmission Date: 20220721
  Serious: Yes (Life-Threatening, Hospitalization)
  Sender: FDA-Public Use
  Company Number: GB-MYLANLABS-2022M1041094

PATIENT
  Age: 31 Year
  Sex: Male

DRUGS (18)
  1. ATORVASTATIN [Suspect]
     Active Substance: ATORVASTATIN
     Indication: Ventricular fibrillation
     Dosage: 40 MILLIGRAM
     Route: 065
  2. ATORVASTATIN [Suspect]
     Active Substance: ATORVASTATIN
     Indication: Cardiac arrest
  3. ATORVASTATIN [Suspect]
     Active Substance: ATORVASTATIN
     Indication: Myocardial bridging
  4. BISOPROLOL [Suspect]
     Active Substance: BISOPROLOL
     Indication: Ventricular fibrillation
     Dosage: 2.5 MILLIGRAM
     Route: 065
  5. BISOPROLOL [Suspect]
     Active Substance: BISOPROLOL
     Indication: Cardiac arrest
     Dosage: 5 MILLIGRAM
     Route: 065
  6. BISOPROLOL [Suspect]
     Active Substance: BISOPROLOL
     Indication: Myocardial bridging
  7. IVABRADINE [Suspect]
     Active Substance: IVABRADINE
     Indication: Ventricular fibrillation
     Dosage: 5 MILLIGRAM, BID
     Route: 065
  8. IVABRADINE [Suspect]
     Active Substance: IVABRADINE
     Indication: Cardiac arrest
  9. IVABRADINE [Suspect]
     Active Substance: IVABRADINE
     Indication: Myocardial bridging
  10. ASPIRIN [Suspect]
     Active Substance: ASPIRIN
     Indication: Ventricular fibrillation
     Dosage: 75 MILLIGRAM
     Route: 065
  11. ASPIRIN [Suspect]
     Active Substance: ASPIRIN
     Indication: Cardiac arrest
  12. ASPIRIN [Suspect]
     Active Substance: ASPIRIN
     Indication: Myocardial bridging
  13. AMLODIPINE [Concomitant]
     Active Substance: AMLODIPINE BESYLATE
     Indication: Ventricular fibrillation
     Dosage: 5 MILLIGRAM
     Route: 065
  14. AMLODIPINE [Concomitant]
     Active Substance: AMLODIPINE BESYLATE
     Indication: Cardiac arrest
     Dosage: 20 MILLIGRAM
     Route: 065
  15. AMLODIPINE [Concomitant]
     Active Substance: AMLODIPINE BESYLATE
     Indication: Myocardial bridging
  16. ISOSORBIDE MONONITRATE [Concomitant]
     Active Substance: ISOSORBIDE MONONITRATE
     Indication: Ventricular fibrillation
     Dosage: 30 MILLIGRAM
     Route: 065
  17. ISOSORBIDE MONONITRATE [Concomitant]
     Active Substance: ISOSORBIDE MONONITRATE
     Indication: Cardiac arrest
  18. ISOSORBIDE MONONITRATE [Concomitant]
     Active Substance: ISOSORBIDE MONONITRATE
     Indication: Myocardial bridging

REACTIONS (1)
  - Drug ineffective [Unknown]
